FAERS Safety Report 18013132 (Version 3)
Quarter: 2022Q2

REPORT INFORMATION
  Report Type: Spontaneous
  Country: US (occurrence: US)
  Receive Date: 20200713
  Receipt Date: 20220426
  Transmission Date: 20220721
  Serious: No
  Sender: FDA-Public Use
  Company Number: US-PFIZER INC-2020266031

PATIENT
  Age: 81 Year
  Sex: Female
  Weight: 138 kg

DRUGS (1)
  1. AROMASIN [Suspect]
     Active Substance: EXEMESTANE
     Indication: Breast cancer female
     Dosage: 25 MG, 1X/DAY
     Route: 048

REACTIONS (3)
  - Illness [Unknown]
  - Product dispensing error [Unknown]
  - Product dose omission issue [Not Recovered/Not Resolved]
